FAERS Safety Report 9015828 (Version 1)
Quarter: 2012Q4

REPORT INFORMATION
  Report Type: Spontaneous
  Country: US (occurrence: None)
  Receive Date: 20121231
  Receipt Date: 20121231
  Transmission Date: 20130627
  Serious: Yes (Other)
  Sender: FDA-Public Use
  Company Number: DKLU1087415

PATIENT
  Age: 76 Year
  Sex: Male

DRUGS (2)
  1. ONFI [Suspect]
     Indication: PRODUCT USED FOR UNKNOWN INDICATION
     Dosage: 5 mg milligram(s), 2 in 1 D
     Dates: start: 20121128
  2. ONFI [Suspect]
     Indication: PRODUCT USED FOR UNKNOWN INDICATION
     Dosage: 10 mg milligram(s), 2 in 1 D

REACTIONS (3)
  - Gait disturbance [None]
  - Somnolence [None]
  - Gait disturbance [None]
